FAERS Safety Report 25891320 (Version 1)
Quarter: 2025Q4

REPORT INFORMATION
  Report Type: Spontaneous
  Country: CA (occurrence: CA)
  Receive Date: 20251007
  Receipt Date: 20251007
  Transmission Date: 20260118
  Serious: Yes (Other)
  Sender: ROCHE
  Company Number: CA-ROCHE-10000402146

PATIENT
  Age: 55 Year
  Sex: Male

DRUGS (2)
  1. RITUXIMAB [Suspect]
     Active Substance: RITUXIMAB
     Indication: Granulomatosis with polyangiitis
     Route: 065
  2. RITUXIMAB [Suspect]
     Active Substance: RITUXIMAB
     Route: 042

REACTIONS (8)
  - Blood pressure increased [Recovered/Resolved]
  - Dysphagia [Recovered/Resolved]
  - Lacrimation increased [Recovered/Resolved]
  - Paraesthesia [Recovered/Resolved]
  - Product use issue [Recovered/Resolved]
  - Rhinorrhoea [Recovered/Resolved]
  - Snoring [Recovered/Resolved]
  - Throat irritation [Recovered/Resolved]
